FAERS Safety Report 7816562-8 (Version None)
Quarter: 2011Q4

REPORT INFORMATION
  Report Type: 
  Country: None (occurrence: None)
  Receive Date: 20111017
  Receipt Date: 20111010
  Transmission Date: 20120403
  Serious: Yes (Hospitalization)
  Sender: FDA-Public Use
  Company Number: SG-PFIZER INC-2006055997

PATIENT
  Age: 53 Year
  Sex: Female

DRUGS (6)
  1. ENOXAPARIN SODIUM [Concomitant]
     Route: 058
     Dates: start: 20060101
  2. ATENOLOL [Concomitant]
     Route: 048
     Dates: start: 20020101
  3. SUNITINIB MALATE [Suspect]
     Indication: GASTROINTESTINAL STROMAL TUMOUR
     Dosage: 50 MG, 1X/DAY
     Route: 048
     Dates: start: 20060420
  4. LEVOTHYROXINE SODIUM [Concomitant]
     Route: 048
     Dates: start: 19970101
  5. SUNITINIB MALATE [Suspect]
     Dosage: 50 MG, UNK
     Route: 048
     Dates: start: 20060426, end: 20060502
  6. SUNITINIB MALATE [Suspect]
     Dosage: 37.5 MG, UNK
     Route: 048
     Dates: start: 20060508

REACTIONS (3)
  - URINARY TRACT INFECTION [None]
  - CONFUSIONAL STATE [None]
  - INTESTINAL OBSTRUCTION [None]
